FAERS Safety Report 9517637 (Version 1)
Quarter: 2013Q3

REPORT INFORMATION
  Report Type: Spontaneous
  Country: BR (occurrence: BR)
  Receive Date: 20130912
  Receipt Date: 20130912
  Transmission Date: 20140515
  Serious: Yes (Other)
  Sender: FDA-Public Use
  Company Number: BR-AMGEN-BRASP2013063631

PATIENT
  Age: 47 Year
  Sex: Male
  Weight: 69 kg

DRUGS (4)
  1. ENBREL [Suspect]
     Indication: RHEUMATOID ARTHRITIS
     Dosage: 25 MG, 2X/WEEK
     Route: 058
     Dates: start: 200706, end: 201308
  2. DICLOFENAC SODIUM [Concomitant]
     Dosage: UNK UNK, UNK
  3. FAMOTIDINE [Concomitant]
     Dosage: UNK UNK, UNK
  4. PREDNISONE [Concomitant]
     Dosage: UNK UNK, UNK

REACTIONS (3)
  - Infarction [Unknown]
  - Hypertension [Unknown]
  - Blood cholesterol increased [Unknown]
